FAERS Safety Report 15445070 (Version 1)
Quarter: 2018Q3

REPORT INFORMATION
  Report Type: Report from Study
  Country: US (occurrence: US)
  Receive Date: 20180928
  Receipt Date: 20180928
  Transmission Date: 20181010
  Serious: No
  Sender: FDA-Public Use
  Company Number: US-AMGEN-USASP2018060360

PATIENT
  Age: 75 Year
  Sex: Female

DRUGS (1)
  1. PROLIA [Suspect]
     Active Substance: DENOSUMAB
     Indication: OSTEOPOROSIS POSTMENOPAUSAL
     Dosage: UNK UNK, UNK
     Route: 065
     Dates: start: 201705

REACTIONS (9)
  - Musculoskeletal pain [Unknown]
  - Asthenia [Recovered/Resolved]
  - Injection site pain [Unknown]
  - Bone pain [Unknown]
  - Sleep disorder due to a general medical condition [Unknown]
  - Drug effect incomplete [Unknown]
  - Pain [Unknown]
  - Pain in extremity [Unknown]
  - Myalgia [Unknown]

NARRATIVE: CASE EVENT DATE: 201711
